FAERS Safety Report 6563198-5 (Version None)
Quarter: 2010Q1

REPORT INFORMATION
  Report Type: 
  Country: None (occurrence: None)
  Receive Date: 20100130
  Receipt Date: 20091203
  Transmission Date: 20100710
  Serious: No
  Sender: FDA-Public Use
  Company Number: US-ABBOTT-09P-163-0613099-00

PATIENT
  Sex: Male

DRUGS (4)
  1. HUMIRA [Suspect]
     Indication: PSORIASIS
     Route: 058
     Dates: start: 20090301, end: 20090401
  2. HUMIRA [Suspect]
     Route: 058
     Dates: start: 20091101
  3. RAPTIVA [Suspect]
     Indication: PSORIASIS
  4. METHOTREXATE [Concomitant]
     Indication: PSORIASIS
     Dosage: UNKNOWN
     Dates: start: 20090401, end: 20091101

REACTIONS (1)
  - MOLLUSCUM CONTAGIOSUM [None]
